FAERS Safety Report 4976147-8 (Version None)
Quarter: 2006Q2

REPORT INFORMATION
  Report Type: 
  Country: None (occurrence: None)
  Receive Date: 20060411
  Receipt Date: 20060407
  Transmission Date: 20061013
  Serious: Yes (Other)
  Sender: FDA-Public Use
  Company Number: 200610383GDS

PATIENT
  Sex: Female

DRUGS (1)
  1. ACARBOSE [Suspect]
     Indication: DIABETES MELLITUS
     Dosage: ORAL
     Route: 048
     Dates: start: 20051101

REACTIONS (2)
  - PIGMENTATION DISORDER [None]
  - SUNBURN [None]
